FAERS Safety Report 7538994-8 (Version None)
Quarter: 2011Q2

REPORT INFORMATION
  Report Type: 
  Country: None (occurrence: None)
  Receive Date: 20110610
  Receipt Date: 20110524
  Transmission Date: 20111010
  Serious: Yes (Hospitalization, Other)
  Sender: FDA-Public Use
  Company Number: US-BAYER-2011-017061

PATIENT
  Age: 43 Year
  Sex: Female
  Weight: 58.957 kg

DRUGS (5)
  1. IBUPROFEN [Concomitant]
     Dosage: UNK
     Dates: start: 20020502
  2. CELEXA [Concomitant]
     Indication: DEPRESSION
     Dosage: UNK
     Dates: start: 19800101
  3. YASMIN [Suspect]
     Indication: PRODUCT USED FOR UNKNOWN INDICATION
     Dosage: UNK
     Dates: start: 20020201, end: 20020601
  4. IBUPROFEN [Concomitant]
     Dosage: UNK UNK, PRN
     Dates: start: 20000101
  5. XANAX [Concomitant]

REACTIONS (4)
  - INJURY [None]
  - PULMONARY EMBOLISM [None]
  - PAIN [None]
  - PELVIC VENOUS THROMBOSIS [None]
